FAERS Safety Report 9281094 (Version 2)
Quarter: 2013Q4

REPORT INFORMATION
  Report Type: Spontaneous
  Country: US (occurrence: US)
  Receive Date: 20130509
  Receipt Date: 20131105
  Transmission Date: 20140711
  Serious: Yes (Life-Threatening, Hospitalization)
  Sender: FDA-Public Use
  Company Number: US-BAYER-2013-056685

PATIENT
  Age: 22 Year
  Sex: Female
  Weight: 89.8 kg

DRUGS (4)
  1. MIRENA [Suspect]
     Indication: CONTRACEPTION
     Dosage: 20 MCG/24HR, CONT
     Route: 015
     Dates: start: 20110713, end: 20120530
  2. HYDROCHLOROTHIAZIDE [Concomitant]
     Route: 048
  3. ZYRTEC [Concomitant]
     Route: 048
  4. NASACORT [Concomitant]
     Route: 045

REACTIONS (11)
  - Uterine perforation [None]
  - Injury [None]
  - Pain [None]
  - General physical health deterioration [None]
  - Anxiety [None]
  - Anhedonia [None]
  - Infection [None]
  - Emotional distress [None]
  - Pelvic pain [None]
  - Abdominal pain [None]
  - Depression [None]
